FAERS Safety Report 6969011-6 (Version None)
Quarter: 2010Q3

REPORT INFORMATION
  Report Type: 
  Country: None (occurrence: None)
  Receive Date: 20100907
  Receipt Date: 20100826
  Transmission Date: 20110219
  Serious: Yes (Other)
  Sender: FDA-Public Use
  Company Number: GB-PFIZER INC-2010097244

PATIENT
  Age: 82 Year
  Sex: Male

DRUGS (4)
  1. VIAGRA [Suspect]
     Indication: ERECTILE DYSFUNCTION
     Dosage: 50 MG, UNK
     Dates: start: 20000918, end: 20070323
  2. VIAGRA [Suspect]
     Dosage: 100 MG, UNK
     Route: 048
     Dates: start: 20080513, end: 20100517
  3. TAMSULOSIN [Concomitant]
     Indication: PROSTATISM
     Dosage: 400 UG, 1X/DAY
     Route: 048
     Dates: start: 20100304
  4. PARACETAMOL [Concomitant]
     Indication: PAIN
     Dosage: 1 G FOUR TIMES DAILY AS NEEDED
     Route: 048

REACTIONS (1)
  - DEAFNESS NEUROSENSORY [None]
